FAERS Safety Report 8031553-2 (Version None)
Quarter: 2012Q1

REPORT INFORMATION
  Report Type: 
  Country: None (occurrence: None)
  Receive Date: 20120109
  Receipt Date: 20111230
  Transmission Date: 20120608
  Serious: Yes (Hospitalization)
  Sender: FDA-Public Use
  Company Number: US-NOVOPROD-342312

PATIENT

DRUGS (6)
  1. MS CONTIN [Concomitant]
     Indication: PAIN
     Dosage: 1.8 MG, QD
  2. VICTOZA [Suspect]
     Indication: TYPE 2 DIABETES MELLITUS
     Dosage: 1.8 MG, QD
     Route: 058
     Dates: start: 20110701, end: 20111101
  3. VERAPAMIL [Concomitant]
     Indication: HYPERTENSION
     Dosage: UNK
  4. ALBUTEROL [Concomitant]
     Indication: CHRONIC OBSTRUCTIVE PULMONARY DISEASE
  5. CODEINE [Concomitant]
     Indication: PAIN
     Dosage: 10/325 MG
  6. NEUROTIN                           /00949202/ [Concomitant]
     Indication: DIABETIC NEUROPATHY
     Dosage: UNK

REACTIONS (1)
  - CHRONIC OBSTRUCTIVE PULMONARY DISEASE [None]
